FAERS Safety Report 13346471 (Version 1)
Quarter: 2017Q1

REPORT INFORMATION
  Report Type: Spontaneous
  Country: US (occurrence: US)
  Receive Date: 20170317
  Receipt Date: 20170317
  Transmission Date: 20170428
  Serious: Yes (Hospitalization)
  Sender: FDA-Public Use
  Company Number: None

PATIENT
  Age: 92 Year
  Sex: Female

DRUGS (2)
  1. ENBREL [Suspect]
     Active Substance: ETANERCEPT
     Indication: PSORIATIC ARTHROPATHY
     Dosage: UNDER THE SKIN
     Dates: start: 20161201
  2. CEPHALEXIN. [Concomitant]
     Active Substance: CEPHALEXIN

REACTIONS (2)
  - Arthritis infective [None]
  - Cellulitis [None]

NARRATIVE: CASE EVENT DATE: 201702
